FAERS Safety Report 4983325-0 (Version None)
Quarter: 2006Q2

REPORT INFORMATION
  Report Type: 
  Country: None (occurrence: None)
  Receive Date: 20060426
  Receipt Date: 20050912
  Transmission Date: 20061013
  Serious: Yes (Hospitalization, Other)
  Sender: FDA-Public Use
  Company Number: US-MERCK-0509USA01445

PATIENT
  Age: 51 Year
  Sex: Female
  Weight: 67 kg

DRUGS (8)
  1. VIOXX [Suspect]
     Indication: BACK PAIN
     Route: 048
     Dates: start: 20000101, end: 20030101
  2. PREMARIN [Concomitant]
     Route: 065
  3. GLUCOTROL [Concomitant]
     Route: 065
  4. LIPITOR [Concomitant]
     Route: 065
  5. TOPROL-XL [Concomitant]
     Route: 065
  6. ACIPHEX [Concomitant]
     Route: 065
  7. GLUCOPHAGE [Concomitant]
     Route: 065
  8. CARDURA [Concomitant]
     Route: 065

REACTIONS (5)
  - CARDIAC DISORDER [None]
  - CARDIAC FAILURE CONGESTIVE [None]
  - CHEST PAIN [None]
  - MYOCARDIAL INFARCTION [None]
  - SPINAL DISORDER [None]
